FAERS Safety Report 23032366 (Version 2)
Quarter: 2023Q4

REPORT INFORMATION
  Report Type: Report from Study
  Country: US (occurrence: US)
  Receive Date: 20231005
  Receipt Date: 20231106
  Transmission Date: 20240109
  Serious: Yes (Other)
  Sender: FDA-Public Use
  Company Number: US-drreddys-CLI/USA/23/0178629

PATIENT
  Age: 37 Year
  Sex: Female

DRUGS (4)
  1. ZENATANE [Suspect]
     Active Substance: ISOTRETINOIN
     Indication: Product used for unknown indication
     Dosage: RMA ISSUE DATE: 14 MARCH 2023 12:31:54 PM, 17 JUNE 2023 12:07:33 PM AND 18 JULY 2023 09:04:38 AM
     Dates: start: 20230314, end: 20230809
  2. ZENATANE [Suspect]
     Active Substance: ISOTRETINOIN
     Dosage: RMA ISSUE DATE: 14 APRIL 2023 09:15:44 AM
  3. ZENATANE [Suspect]
     Active Substance: ISOTRETINOIN
     Dosage: RMA ISSUE DATE: 15 MAY 2023 03:04:12 PM
  4. TRI-LO-MARZIA [Concomitant]
     Active Substance: ETHINYL ESTRADIOL\NORGESTIMATE
     Indication: Product used for unknown indication

REACTIONS (3)
  - Exposure during pregnancy [Unknown]
  - Therapy cessation [Unknown]
  - Abortion induced [Unknown]

NARRATIVE: CASE EVENT DATE: 20230920
